FAERS Safety Report 11894934 (Version 1)
Quarter: 2016Q1

REPORT INFORMATION
  Report Type: Spontaneous
  Country: US (occurrence: US)
  Receive Date: 20160107
  Receipt Date: 20160107
  Transmission Date: 20160526
  Serious: No
  Sender: FDA-Public Use
  Company Number: US-SHIRE-US201600006

PATIENT
  Sex: Female
  Weight: 58.96 kg

DRUGS (12)
  1. FLUDROCORTISONE ACETATE. [Concomitant]
     Active Substance: FLUDROCORTISONE ACETATE
     Indication: ADDISON^S DISEASE
     Dosage: 0.1 MG, 1X/DAY:QD
     Route: 065
  2. HYDROCORTISONE. [Concomitant]
     Active Substance: HYDROCORTISONE
     Indication: ADDISON^S DISEASE
     Dosage: 10 MG, 1X/DAY:QD (IN THE MORNING)
     Route: 065
  3. HYDROCORTISONE. [Concomitant]
     Active Substance: HYDROCORTISONE
     Dosage: 5 MG, 2X/DAY:BID (5 MG AT NOON, 5 MG AT NIGHT)
     Route: 065
  4. LIALDA [Suspect]
     Active Substance: MESALAMINE
     Indication: CROHN^S DISEASE
     Dosage: 1.2 G, 2X/DAY:BID (1 TABLET IN THE MORNING AND 1 TABLET AT NIGHT)
     Route: 048
  5. LIALDA [Suspect]
     Active Substance: MESALAMINE
     Indication: COLITIS ULCERATIVE
  6. B12                                /00056201/ [Concomitant]
     Indication: VITAMIN B12 ABNORMAL
     Dosage: UNK, UNKNOWN
     Route: 030
  7. VITAMIN D                          /00107901/ [Concomitant]
     Active Substance: ERGOCALCIFEROL
     Indication: PRODUCT USED FOR UNKNOWN INDICATION
     Dosage: 50000 IU, OTHER (THREE TIMES PER MONTH)
     Route: 065
  8. CENTRUM SILVER                     /02363801/ [Concomitant]
     Active Substance: MINERALS\VITAMINS
     Indication: PRODUCT USED FOR UNKNOWN INDICATION
     Dosage: UNK, UNKNOWN
     Route: 065
  9. LEVOTHYROXINE. [Concomitant]
     Active Substance: LEVOTHYROXINE
     Indication: THYROID DISORDER
     Dosage: 50 ?G, OTHER (4 DAYS PER WEEK)
     Route: 065
  10. CITRACAL-D [Concomitant]
     Indication: PRODUCT USED FOR UNKNOWN INDICATION
     Dosage: UNK, UNKNOWN
     Route: 065
  11. B12                                /00056201/ [Concomitant]
     Dosage: UNK, OTHER (TWICE A WEEK)
     Route: 060
  12. LEVOTHYROXINE. [Concomitant]
     Active Substance: LEVOTHYROXINE
     Dosage: UNK (HALF OF 50 MCG TABLET), OTHER (3 DAYS PER WEEK)
     Route: 065

REACTIONS (9)
  - Ill-defined disorder [Not Recovered/Not Resolved]
  - Cardiac murmur [Unknown]
  - Unevaluable event [Unknown]
  - Product use issue [Not Recovered/Not Resolved]
  - Fatigue [Unknown]
  - Inappropriate schedule of drug administration [Not Recovered/Not Resolved]
  - Gastrointestinal disorder [Not Recovered/Not Resolved]
  - Chest discomfort [Not Recovered/Not Resolved]
  - Anxiety [Unknown]

NARRATIVE: CASE EVENT DATE: 2014
